FAERS Safety Report 9176596 (Version 1)
Quarter: 2013Q1

REPORT INFORMATION
  Report Type: Spontaneous
  Country: US (occurrence: None)
  Receive Date: 20130320
  Receipt Date: 20130320
  Transmission Date: 20140127
  Serious: Yes (Life-Threatening, Disabling)
  Sender: FDA-Public Use
  Company Number: None

PATIENT
  Age: 72 Year
  Sex: Male
  Weight: 95.26 kg

DRUGS (2)
  1. ATORVASTATIN CALCIUM [Suspect]
     Route: 048
     Dates: start: 20121229, end: 20130310
  2. FENOFIBRATE [Suspect]
     Route: 048
     Dates: start: 20121229, end: 20130310

REACTIONS (5)
  - Myalgia [None]
  - Arthralgia [None]
  - Back pain [None]
  - Arthralgia [None]
  - Cough [None]
